FAERS Safety Report 12317560 (Version 4)
Quarter: 2016Q3

REPORT INFORMATION
  Report Type: Spontaneous
  Country: US (occurrence: US)
  Receive Date: 20160429
  Receipt Date: 20160929
  Transmission Date: 20161109
  Serious: Yes (Hospitalization, Other)
  Sender: FDA-Public Use
  Company Number: PHEH2016US010470

PATIENT
  Sex: Female
  Weight: 86.17 kg

DRUGS (1)
  1. ZOFRAN [Suspect]
     Active Substance: ONDANSETRON HYDROCHLORIDE
     Indication: VOMITING IN PREGNANCY
     Dosage: 8 MG, TID
     Route: 048
     Dates: start: 20060501, end: 20061213

REACTIONS (8)
  - Maternal exposure during pregnancy [Unknown]
  - Anxiety [Unknown]
  - Pyelonephritis [Unknown]
  - Injury [Unknown]
  - Pain [Unknown]
  - Emotional distress [Unknown]
  - Product use issue [Unknown]
  - Postoperative wound infection [Unknown]
